FAERS Safety Report 16352086 (Version 1)
Quarter: 2019Q2

REPORT INFORMATION
  Report Type: Spontaneous
  Country: BR (occurrence: BR)
  Receive Date: 20190524
  Receipt Date: 20190524
  Transmission Date: 20190711
  Serious: Yes (Other)
  Sender: FDA-Public Use
  Company Number: BR-DSJP-DSE-2019-117138AA

PATIENT

DRUGS (1)
  1. LIXIANA 60MG [Suspect]
     Active Substance: EDOXABAN TOSYLATE
     Indication: PHLEBECTOMY
     Dosage: 60 MG
     Route: 065

REACTIONS (4)
  - Oedema peripheral [Unknown]
  - Off label use [Unknown]
  - Deep vein thrombosis [Unknown]
  - Uterine cancer [Unknown]
